FAERS Safety Report 9053324 (Version 2)
Quarter: 2013Q4

REPORT INFORMATION
  Report Type: Spontaneous
  Country: GB (occurrence: GB)
  Receive Date: 20130207
  Receipt Date: 20131127
  Transmission Date: 20140711
  Serious: Yes (Hospitalization)
  Sender: FDA-Public Use
  Company Number: PHHY2013GB011129

PATIENT
  Age: 2 Year
  Sex: Female
  Weight: 12 kg

DRUGS (1)
  1. VALPROIC ACID [Suspect]
     Dosage: 4 G, UNK

REACTIONS (6)
  - Electrocardiogram QT prolonged [Unknown]
  - Toxicity to various agents [Unknown]
  - Depressed level of consciousness [Unknown]
  - Confusional state [Unknown]
  - Accidental overdose [Unknown]
  - Hypocalcaemia [Unknown]
